FAERS Safety Report 19296019 (Version 1)
Quarter: 2021Q2

REPORT INFORMATION
  Report Type: Other
  Country: HN (occurrence: HN)
  Receive Date: 20210524
  Receipt Date: 20210524
  Transmission Date: 20210717
  Serious: Yes (Other)
  Sender: FDA-Public Use
  Company Number: HN-ROCHE-2831356

PATIENT
  Age: 41 Year
  Sex: Female

DRUGS (2)
  1. BEVACIZUMAB. [Suspect]
     Active Substance: BEVACIZUMAB
     Indication: LUNG NEOPLASM MALIGNANT
     Route: 065
  2. ATEZOLIZUMAB. [Suspect]
     Active Substance: ATEZOLIZUMAB
     Indication: LUNG NEOPLASM MALIGNANT
     Route: 041

REACTIONS (8)
  - Chills [Unknown]
  - Epistaxis [Unknown]
  - Aphonia [Unknown]
  - Rash [Unknown]
  - Neutrophil count increased [Unknown]
  - Autoimmune disorder [Unknown]
  - Pneumonia [Unknown]
  - Hyperhidrosis [Unknown]
